FAERS Safety Report 20616217 (Version 1)
Quarter: 2022Q1

REPORT INFORMATION
  Report Type: Spontaneous
  Country: US (occurrence: None)
  Receive Date: 20220319
  Receipt Date: 20220319
  Transmission Date: 20220423
  Serious: Yes (Hospitalization)
  Sender: FDA-Public Use
  Company Number: None

PATIENT
  Age: 74 Year
  Sex: Male
  Weight: 119.3 kg

DRUGS (3)
  1. CYTARABINE [Suspect]
     Active Substance: CYTARABINE
     Dates: end: 20220318
  2. DEXAMETHASONE [Suspect]
     Active Substance: DEXAMETHASONE
     Dates: end: 20220318
  3. RITUXIMAB [Suspect]
     Active Substance: RITUXIMAB

REACTIONS (3)
  - Hypoxia [None]
  - Pulmonary embolism [None]
  - Therapy interrupted [None]

NARRATIVE: CASE EVENT DATE: 20220318
